FAERS Safety Report 24193769 (Version 1)
Quarter: 2024Q3

REPORT INFORMATION
  Report Type: Other
  Country: TR (occurrence: TR)
  Receive Date: 20240809
  Receipt Date: 20240809
  Transmission Date: 20241017
  Serious: Yes (Hospitalization, Other)
  Sender: APPCO PHARMA
  Company Number: TR-Appco Pharma LLC-2160220

PATIENT
  Age: 81 Year
  Sex: Male

DRUGS (1)
  1. SILDENAFIL CITRATE [Suspect]
     Active Substance: SILDENAFIL CITRATE
     Indication: Erectile dysfunction
     Route: 048

REACTIONS (2)
  - Accidental exposure to product [Unknown]
  - Pulmonary embolism [Recovered/Resolved]
